FAERS Safety Report 14523068 (Version 3)
Quarter: 2018Q2

REPORT INFORMATION
  Report Type: Spontaneous
  Country: US (occurrence: US)
  Receive Date: 20180212
  Receipt Date: 20180608
  Transmission Date: 20180711
  Serious: Yes (Death, Hospitalization, Other)
  Sender: FDA-Public Use
  Company Number: US-VIFOR (INTERNATIONAL) INC.-VIT-2018-01374

PATIENT
  Age: 83 Year
  Sex: Female

DRUGS (25)
  1. BISACODYL. [Concomitant]
     Active Substance: BISACODYL
  2. TUMS [Concomitant]
     Active Substance: CALCIUM CARBONATE
  3. GABAPENTIN. [Concomitant]
     Active Substance: GABAPENTIN
  4. GLYCERIN ADULT [Concomitant]
     Active Substance: GLYCERIN
  5. MECLOZINE HYDROCHLORIDE [Concomitant]
     Active Substance: MECLOZINE DIHYDROCHLORIDE
  6. PROTONIX [Concomitant]
     Active Substance: PANTOPRAZOLE SODIUM
  7. ULTRAM [Concomitant]
     Active Substance: TRAMADOL HYDROCHLORIDE
  8. PROCARDIA [Concomitant]
     Active Substance: NIFEDIPINE
  9. SENSIPAR [Concomitant]
     Active Substance: CINACALCET HYDROCHLORIDE
  10. ZOFRAN [Concomitant]
     Active Substance: ONDANSETRON HYDROCHLORIDE
  11. SYSTANE ULTRA [Concomitant]
     Active Substance: POLYETHYLENE GLYCOL 400\PROPYLENE GLYCOL
  12. LOSARTAN POTASSIUM. [Concomitant]
     Active Substance: LOSARTAN POTASSIUM
  13. VELTASSA [Suspect]
     Active Substance: PATIROMER
     Indication: HYPERKALAEMIA
     Route: 048
     Dates: start: 20170517
  14. ACETYLSALICYLIC ACID [Concomitant]
     Active Substance: ASPIRIN
  15. ATORVASTATIN CALCIUM. [Concomitant]
     Active Substance: ATORVASTATIN CALCIUM
  16. GLUCAGON EMERGENCY [Concomitant]
  17. ADVAIR HFA [Concomitant]
     Active Substance: FLUTICASONE PROPIONATE\SALMETEROL XINAFOATE
  18. HYDRALAZINE HYDROCHLORIDE. [Concomitant]
     Active Substance: HYDRALAZINE HYDROCHLORIDE
  19. ISOSORBIDE MONONITRATE. [Concomitant]
     Active Substance: ISOSORBIDE MONONITRATE
  20. CLONIDINE HYDROCHLORIDE. [Concomitant]
     Active Substance: CLONIDINE HYDROCHLORIDE
  21. DIABETIC TUSSIN EX [Concomitant]
  22. TYLENOL EXTRA STRENGTH [Concomitant]
     Active Substance: ACETAMINOPHEN
  23. LEVOTHYROXINE SODIUM. [Concomitant]
     Active Substance: LEVOTHYROXINE SODIUM
  24. RENVELA [Concomitant]
     Active Substance: SEVELAMER CARBONATE
  25. ERGOCALCIFEROL. [Concomitant]
     Active Substance: ERGOCALCIFEROL

REACTIONS (3)
  - Surgery [Unknown]
  - Infection [Unknown]
  - Death [Fatal]

NARRATIVE: CASE EVENT DATE: 201802
